FAERS Safety Report 11046816 (Version 1)
Quarter: 2015Q2

REPORT INFORMATION
  Report Type: Spontaneous
  Country: US (occurrence: None)
  Receive Date: 20150417
  Receipt Date: 20150417
  Transmission Date: 20150821
  Serious: Yes (Hospitalization)
  Sender: FDA-Public Use
  Company Number: None

PATIENT
  Age: 60 Year
  Sex: Male
  Weight: 109.6 kg

DRUGS (2)
  1. ASPIRIN. [Suspect]
     Active Substance: ASPIRIN
     Indication: THROMBOSIS PROPHYLAXIS
     Route: 048
     Dates: start: 20140507, end: 20150115
  2. NAPROXEN. [Suspect]
     Active Substance: NAPROXEN
     Indication: PAIN

REACTIONS (5)
  - Duodenal ulcer [None]
  - Anaemia [None]
  - Gastric haemorrhage [None]
  - Helicobacter infection [None]
  - Upper gastrointestinal haemorrhage [None]

NARRATIVE: CASE EVENT DATE: 20150115
